FAERS Safety Report 5496950-8 (Version None)
Quarter: 2007Q4

REPORT INFORMATION
  Report Type: 
  Country: None (occurrence: None)
  Receive Date: 20071025
  Receipt Date: 20071011
  Transmission Date: 20080405
  Serious: Yes (Hospitalization)
  Sender: FDA-Public Use
  Company Number: B0473236B

PATIENT
  Age: 58 Year
  Sex: Female
  Weight: 62 kg

DRUGS (2)
  1. LAPATINIB [Suspect]
     Dosage: 1250MG PER DAY
     Route: 048
     Dates: start: 20070207
  2. CAPECITABINE [Suspect]
     Dosage: 1650MG TWICE PER DAY
     Route: 048
     Dates: start: 20070207

REACTIONS (1)
  - CHEST PAIN [None]
